FAERS Safety Report 23787107 (Version 1)
Quarter: 2024Q2

REPORT INFORMATION
  Report Type: Report from Study
  Country: US (occurrence: US)
  Receive Date: 20240426
  Receipt Date: 20240426
  Transmission Date: 20240715
  Serious: Yes (Hospitalization)
  Sender: FDA-Public Use
  Company Number: US-ABBVIE-5733144

PATIENT
  Sex: Female

DRUGS (1)
  1. HUMIRA [Suspect]
     Active Substance: ADALIMUMAB
     Indication: Product used for unknown indication
     Dosage: FORM STRENGTH 40 MILLIGRAM ?CITRATE FREE
     Route: 058

REACTIONS (3)
  - Physiotherapy [Not Recovered/Not Resolved]
  - Occupational therapy [Not Recovered/Not Resolved]
  - Visual impairment [Unknown]
